FAERS Safety Report 22606952 (Version 2)
Quarter: 2023Q2

REPORT INFORMATION
  Report Type: Spontaneous
  Country: LV (occurrence: LV)
  Receive Date: 20230615
  Receipt Date: 20230628
  Transmission Date: 20230721
  Serious: Yes (Hospitalization)
  Sender: FDA-Public Use
  Company Number: LV-TEVA-2023-LV-2896691

PATIENT
  Age: 50 Year
  Sex: Male

DRUGS (4)
  1. OLANZAPINE [Suspect]
     Active Substance: OLANZAPINE
     Indication: Schizophrenia
     Route: 065
  2. HALOPERIDOL [Suspect]
     Active Substance: HALOPERIDOL
     Indication: Schizophrenia
     Dosage: 7.5 MILLIGRAM DAILY;
     Route: 030
  3. HALOPERIDOL [Suspect]
     Active Substance: HALOPERIDOL
     Dosage: 15 MILLIGRAM DAILY;
     Route: 048
  4. TRIHEXYPHENIDYL [Suspect]
     Active Substance: TRIHEXYPHENIDYL
     Indication: Schizophrenia
     Dosage: 6 MILLIGRAM DAILY;
     Route: 065

REACTIONS (5)
  - Parkinsonism [Recovered/Resolved]
  - Akathisia [Recovered/Resolved]
  - Dysarthria [Recovered/Resolved]
  - Dystonia [Recovered/Resolved]
  - Rebound effect [Unknown]
